FAERS Safety Report 5633294-5 (Version None)
Quarter: 2008Q1

REPORT INFORMATION
  Report Type: 
  Country: None (occurrence: None)
  Receive Date: 20080221
  Receipt Date: 20080207
  Transmission Date: 20080703
  Serious: Yes (Other)
  Sender: FDA-Public Use
  Company Number: JP-NOVOPROD-271715

PATIENT
  Age: 59 Year
  Sex: Male
  Weight: 52 kg

DRUGS (2)
  1. NOVORAPID CHU [Suspect]
     Indication: TYPE 2 DIABETES MELLITUS
     Dosage: 6 IU, UNK
     Route: 058
     Dates: start: 20080126
  2. NOVORAPID 30 MIX CHU [Suspect]
     Indication: TYPE 2 DIABETES MELLITUS
     Dosage: 36 IU, UNK
     Route: 058
     Dates: start: 20080126

REACTIONS (1)
  - HENOCH-SCHONLEIN PURPURA [None]
